FAERS Safety Report 9981760 (Version 2)
Quarter: 2014Q1

REPORT INFORMATION
  Report Type: Report from Study
  Country: US (occurrence: US)
  Receive Date: 20140307
  Receipt Date: 20140307
  Transmission Date: 20141002
  Serious: Yes (Other)
  Sender: FDA-Public Use
  Company Number: US-ABBVIE-13P-163-1174564-00

PATIENT
  Age: 58 Year
  Sex: Female

DRUGS (8)
  1. HUMIRA [Suspect]
     Indication: PSORIASIS
     Route: 058
     Dates: start: 20131104
  2. HUMIRA [Suspect]
     Indication: PSORIATIC ARTHROPATHY
  3. ZYPREXA [Suspect]
     Indication: BIPOLAR DISORDER
  4. TEGRETOL [Concomitant]
     Indication: BIPOLAR DISORDER
  5. NEURONTIN [Concomitant]
     Indication: NEUROPATHY PERIPHERAL
  6. GLYBURIDE [Concomitant]
     Indication: DIABETES MELLITUS
  7. PROVIGIL [Concomitant]
     Indication: PRODUCT USED FOR UNKNOWN INDICATION
  8. VOLTAREN [Concomitant]
     Indication: PRODUCT USED FOR UNKNOWN INDICATION

REACTIONS (2)
  - Pancreatitis [Not Recovered/Not Resolved]
  - Flank pain [Not Recovered/Not Resolved]
